FAERS Safety Report 24632634 (Version 2)
Quarter: 2024Q4

REPORT INFORMATION
  Report Type: Spontaneous
  Country: TH (occurrence: TH)
  Receive Date: 20241118
  Receipt Date: 20241119
  Transmission Date: 20250114
  Serious: Yes (Life-Threatening)
  Sender: GUERBET
  Company Number: TH-GUERBETG-TH-20240020

PATIENT
  Age: 64 Year
  Sex: Female
  Weight: 65.7 kg

DRUGS (1)
  1. DOTAREM [Suspect]
     Active Substance: GADOTERATE MEGLUMINE
     Indication: Magnetic resonance imaging neck
     Route: 042
     Dates: start: 20241104, end: 20241104

REACTIONS (6)
  - Vision blurred [Not Recovered/Not Resolved]
  - Dizziness [Not Recovered/Not Resolved]
  - Chest discomfort [Not Recovered/Not Resolved]
  - Nausea [Not Recovered/Not Resolved]
  - Vomiting [Not Recovered/Not Resolved]
  - Blood pressure decreased [Recovering/Resolving]

NARRATIVE: CASE EVENT DATE: 20241104
